FAERS Safety Report 8439113-6 (Version None)
Quarter: 2012Q2

REPORT INFORMATION
  Report Type: 
  Country: None (occurrence: None)
  Receive Date: 20120615
  Receipt Date: 20120601
  Transmission Date: 20120825
  Serious: Yes (Other)
  Sender: FDA-Public Use
  Company Number: US-UCBSA-046851

PATIENT
  Age: 39 Year
  Sex: Female

DRUGS (2)
  1. BENADRYL [Concomitant]
     Dosage: UNKNOWN DOSE
  2. CIMZIA [Suspect]
     Indication: RHEUMATOID ARTHRITIS
     Dosage: UNKNOWN DOSE
     Dates: start: 20111101, end: 20111101

REACTIONS (7)
  - HYPERHIDROSIS [None]
  - HERPES ZOSTER [None]
  - ORAL PRURITUS [None]
  - SKIN DISORDER [None]
  - TONGUE PRURITUS [None]
  - PRURITUS [None]
  - DYSPNOEA [None]
